FAERS Safety Report 5218134-0 (Version None)
Quarter: 2007Q1

REPORT INFORMATION
  Report Type: 
  Country: None (occurrence: None)
  Receive Date: 20061130
  Receipt Date: 20060901
  Transmission Date: 20070707
  Serious: Yes (Hospitalization)
  Sender: FDA-Public Use
  Company Number: US200609001523

PATIENT
  Sex: Female
  Weight: 98.9 kg

DRUGS (4)
  1. ZYPREXA [Suspect]
     Dates: start: 20050501, end: 20060501
  2. QUETIAPINE FUMARATE [Concomitant]
  3. VENLAFAXINE HCL [Concomitant]
  4. HYDROCHLORZIDE (HYDROCHLOROTHIAZIDE) [Concomitant]

REACTIONS (1)
  - DIABETES MELLITUS [None]
